FAERS Safety Report 7251704-7 (Version None)
Quarter: 2011Q1

REPORT INFORMATION
  Report Type: 
  Country: None (occurrence: None)
  Receive Date: 20110128
  Receipt Date: 20110121
  Transmission Date: 20110831
  Serious: Yes (Other)
  Sender: FDA-Public Use
  Company Number: US-AMGEN-USASP2010012358

PATIENT
  Age: 68 Year
  Sex: Female

DRUGS (4)
  1. PREMARIN [Concomitant]
  2. CLARINEX                           /01202601/ [Concomitant]
  3. PROLIA [Suspect]
     Indication: OSTEOPOROSIS POSTMENOPAUSAL
     Dates: start: 20101228
  4. CALCIUM [Concomitant]

REACTIONS (13)
  - PALPITATIONS [None]
  - COUGH [None]
  - PSORIASIS [None]
  - BRONCHITIS [None]
  - CHILLS [None]
  - PRODUCTIVE COUGH [None]
  - INFECTION [None]
  - NERVOUSNESS [None]
  - VISUAL IMPAIRMENT [None]
  - DIARRHOEA [None]
  - PYREXIA [None]
  - WEIGHT DECREASED [None]
  - ASTHENIA [None]
